FAERS Safety Report 8710875 (Version 2)
Quarter: 2013Q2

REPORT INFORMATION
  Report Type: Spontaneous
  Country: US (occurrence: US)
  Receive Date: 20120807
  Receipt Date: 20130503
  Transmission Date: 20140414
  Serious: Yes (Other)
  Sender: FDA-Public Use
  Company Number: US-PFIZER INC-2012185490

PATIENT
  Age: 75 Year
  Sex: Male

DRUGS (11)
  1. DILANTIN-125 [Suspect]
     Indication: CONVULSION
     Dosage: 100 MG, 2X/DAY
  2. PHENYTOIN [Suspect]
     Indication: CONVULSION
     Dosage: 100 MG, UNK
     Dates: start: 201201, end: 201201
  3. ALLOPURINOL [Concomitant]
     Indication: GOUT
     Dosage: 300 MG, 1X/DAY
  4. TRAMADOL [Concomitant]
     Indication: BACK PAIN
     Dosage: 50 MG, 2X/DAY
  5. DOXAZOSIN [Concomitant]
     Indication: BENIGN PROSTATIC HYPERPLASIA
     Dosage: 4 MG, 1X/DAY
  6. DOXAZOSIN [Concomitant]
     Indication: HYPERTENSION
  7. AMLODIPINE [Concomitant]
     Indication: HYPERTENSION
     Dosage: 10 MG, 1X/DAY
  8. FUROSEMIDE [Concomitant]
     Dosage: 40 MG, 1X/DAY
  9. KCL [Concomitant]
     Dosage: 10 MG, 1X/DAY
  10. CARVEDILOL [Concomitant]
     Dosage: 12.5 MG, 2X/DAY
  11. ISOSORBIDE [Concomitant]
     Dosage: UNK

REACTIONS (3)
  - Convulsion [Recovered/Resolved]
  - Mental status changes [Unknown]
  - Therapeutic response unexpected [Unknown]
